FAERS Safety Report 8476192-4 (Version None)
Quarter: 2012Q2

REPORT INFORMATION
  Report Type: 
  Country: None (occurrence: None)
  Receive Date: 20120628
  Receipt Date: 20120618
  Transmission Date: 20120825
  Serious: Yes (Other)
  Sender: FDA-Public Use
  Company Number: SE-CELGENEUS-150-50794-11043360

PATIENT
  Sex: Male

DRUGS (17)
  1. VIDAZA [Suspect]
     Route: 058
     Dates: start: 20100927, end: 20110305
  2. MAXIDEX [Concomitant]
     Route: 047
  3. OMEPRAZOLE [Concomitant]
     Route: 065
  4. TENORMIN [Concomitant]
     Route: 065
  5. ASPIRIN [Concomitant]
     Route: 065
  6. LEVOXIN [Concomitant]
     Route: 065
  7. SIMVASTATIN [Concomitant]
     Route: 065
  8. LAXOBERAL [Concomitant]
     Route: 048
  9. PREDNISOLONE [Concomitant]
     Route: 065
  10. TENORMIN [Concomitant]
     Route: 065
  11. ALLOPURINOL [Concomitant]
     Route: 065
  12. LACTULOSE MEDA [Concomitant]
     Route: 048
  13. NAVOBAN [Concomitant]
     Route: 065
  14. PRIMPERAN TAB [Concomitant]
     Route: 065
  15. FINASTERID [Concomitant]
     Route: 065
  16. ATACAND [Concomitant]
     Route: 065
  17. ORUDIS [Concomitant]
     Route: 065

REACTIONS (1)
  - FAT NECROSIS [None]
